FAERS Safety Report 6346046-8 (Version None)
Quarter: 2009Q3

REPORT INFORMATION
  Report Type: 
  Country: None (occurrence: None)
  Receive Date: 20090909
  Receipt Date: 20090903
  Transmission Date: 20100115
  Serious: Yes (Other)
  Sender: FDA-Public Use
  Company Number: GB-WYE-G04363909

PATIENT
  Age: 42 Year
  Sex: Male
  Weight: 99 kg

DRUGS (4)
  1. VENLAFAXINE HYDROCHLORIDE [Suspect]
     Indication: DEPRESSION
     Dosage: 75 MG ( FREQUENCY UNKNOWN)
     Route: 048
     Dates: start: 20090327, end: 20090719
  2. ATORVASTATIN [Concomitant]
     Indication: LIPIDS INCREASED
     Dosage: 40 MG (FREQUENCY UNSPECIFIED)
     Route: 048
     Dates: start: 20080215
  3. CITALOPRAM HYDROBROMIDE [Concomitant]
     Indication: DEPRESSION
     Dosage: UNKNOWN
     Dates: end: 20090301
  4. ALLOPURINOL [Concomitant]
     Indication: GOUT
     Dosage: 300 MG (FREQUENCY UNSPECIFIED)
     Route: 048
     Dates: start: 20031208

REACTIONS (1)
  - DIABETES MELLITUS INADEQUATE CONTROL [None]
